FAERS Safety Report 8817647 (Version 2)
Quarter: 2012Q4

REPORT INFORMATION
  Report Type: 
  Country: TW (occurrence: TW)
  Receive Date: 20121001
  Receipt Date: 20121030
  Transmission Date: 20130627
  Serious: Yes (Death, Hospitalization, Other)
  Sender: FDA-Public Use
  Company Number: TW-BRISTOL-MYERS SQUIBB COMPANY-16983942

PATIENT
  Age: 50 Year
  Sex: Female

DRUGS (2)
  1. SPRYCEL [Suspect]
     Indication: CHRONIC MYELOID LEUKAEMIA
     Dosage: 13Jul2012-15Jul12.Inter-15Jul12.
31Jul12-04Aug12
     Route: 048
     Dates: start: 20120713, end: 20120804
  2. ASPIRIN [Suspect]

REACTIONS (5)
  - Subarachnoid haemorrhage [Fatal]
  - Subdural haematoma [Fatal]
  - Pancreatitis acute [Unknown]
  - Sepsis [Unknown]
  - Pancytopenia [Unknown]
